FAERS Safety Report 14331116 (Version 1)
Quarter: 2017Q4

REPORT INFORMATION
  Report Type: Spontaneous
  Country: JP (occurrence: JP)
  Receive Date: 20171228
  Receipt Date: 20171228
  Transmission Date: 20180321
  Serious: Yes (Death, Other)
  Sender: FDA-Public Use
  Company Number: JP-CIPLA LTD.-2017JP25030

PATIENT

DRUGS (13)
  1. PACLITAXEL. [Suspect]
     Active Substance: PACLITAXEL
     Indication: METASTASES TO LUNG
     Dosage: 175 MG/M2, ON DAY 1
     Route: 042
  2. CARBOPLATIN. [Suspect]
     Active Substance: CARBOPLATIN
     Indication: METASTASES TO LUNG
  3. CISPLATIN. [Suspect]
     Active Substance: CISPLATIN
     Indication: METASTASES TO LYMPH NODES
  4. IFOSFAMIDE. [Suspect]
     Active Substance: IFOSFAMIDE
     Indication: METASTASES TO LYMPH NODES
  5. PACLITAXEL. [Suspect]
     Active Substance: PACLITAXEL
     Indication: METASTASES TO LYMPH NODES
     Dosage: UNK, 2 COURSES
     Route: 065
  6. IFOSFAMIDE. [Suspect]
     Active Substance: IFOSFAMIDE
     Indication: URETHRAL CANCER METASTATIC
     Dosage: 1200 MG/M2, ON DAYS 1 TO 3
     Route: 042
  7. SODIUM [Concomitant]
     Active Substance: SODIUM
     Dosage: UNK
     Route: 048
  8. CISPLATIN. [Suspect]
     Active Substance: CISPLATIN
     Indication: METASTASES TO LUNG
  9. CARBOPLATIN. [Suspect]
     Active Substance: CARBOPLATIN
     Indication: URETHRAL CANCER METASTATIC
     Dosage: UNK, 3 COURSES, CYCLICAL
     Route: 065
  10. PACLITAXEL. [Suspect]
     Active Substance: PACLITAXEL
     Indication: URETHRAL CANCER METASTATIC
     Dosage: UNK, 3 COURSES
     Route: 065
  11. CISPLATIN. [Suspect]
     Active Substance: CISPLATIN
     Indication: URETHRAL CANCER METASTATIC
     Dosage: 25 MG/M2, ON DAYS 1 TO 3
     Route: 042
  12. CARBOPLATIN. [Suspect]
     Active Substance: CARBOPLATIN
     Indication: METASTASES TO LYMPH NODES
  13. IFOSFAMIDE. [Suspect]
     Active Substance: IFOSFAMIDE
     Indication: METASTASES TO LUNG
     Dosage: UNK, 2 COURSES
     Route: 065

REACTIONS (4)
  - Decreased appetite [Recovered/Resolved]
  - Urethral cancer metastatic [Fatal]
  - Inappropriate antidiuretic hormone secretion [Recovering/Resolving]
  - Disease progression [Unknown]
